FAERS Safety Report 25009134 (Version 3)
Quarter: 2025Q4

REPORT INFORMATION
  Report Type: Spontaneous
  Country: US (occurrence: US)
  Receive Date: 20250225
  Receipt Date: 20251124
  Transmission Date: 20260118
  Serious: Yes (Other)
  Sender: PFIZER
  Company Number: US-PFIZER INC-PV202300014702

PATIENT
  Age: 83 Year
  Sex: Female

DRUGS (1)
  1. IBRANCE [Suspect]
     Active Substance: PALBOCICLIB
     Dosage: 75 MG TABLET TAKE 1 BY MOUTH DAILY FOR 3 WKS ON 1 WK OFF
     Route: 048

REACTIONS (2)
  - Knee arthroplasty [Unknown]
  - Gait disturbance [Unknown]
